FAERS Safety Report 13915939 (Version 2)
Quarter: 2017Q3

REPORT INFORMATION
  Report Type: Spontaneous
  Country: JP (occurrence: JP)
  Receive Date: 20170829
  Receipt Date: 20170908
  Transmission Date: 20171127
  Serious: Yes (Hospitalization, Other)
  Sender: FDA-Public Use
  Company Number: JP-009507513-1708JPN002844J

PATIENT
  Age: 34 Year
  Sex: Female

DRUGS (8)
  1. MUCODYNE [Concomitant]
     Active Substance: CARBOCYSTEINE
     Indication: ACUTE SINUSITIS
     Dosage: 500 MG, TID,AFTER THE MEAL
     Route: 048
     Dates: start: 20170731, end: 20170731
  2. BESTRON [Concomitant]
     Indication: INHALATION THERAPY
     Dosage: 0.7 ML, UNK
     Route: 055
     Dates: start: 20170731, end: 20170731
  3. DECADRON [Concomitant]
     Active Substance: DEXAMETHASONE
     Indication: INHALATION THERAPY
     Dosage: 0.3 ML, UNK
     Route: 055
     Dates: start: 20170731, end: 20170731
  4. SEISHOKU [Concomitant]
     Active Substance: SODIUM CHLORIDE
     Indication: NASAL IRRIGATION
     Dosage: 500 ML, UNK
     Route: 045
     Dates: start: 20170731, end: 20170731
  5. DESALEX TABLETS 5MG [Suspect]
     Active Substance: DESLORATADINE
     Indication: ACUTE SINUSITIS
     Dosage: 5 MG, QD, IN EVENING
     Route: 048
     Dates: start: 20170731, end: 20170731
  6. OZEX [Concomitant]
     Active Substance: TOSUFLOXACIN TOSYLATE
     Indication: ACUTE SINUSITIS
     Dosage: 450 MG, TID, AFTER THE MEAL
     Route: 048
     Dates: start: 20170731
  7. KLARICID [Concomitant]
     Active Substance: CLARITHROMYCIN
     Indication: ACUTE SINUSITIS
     Dosage: 400 MG, BID, AFTER THE MEAL
     Route: 048
  8. LOXONIN [Concomitant]
     Active Substance: LOXOPROFEN SODIUM
     Indication: ACUTE SINUSITIS
     Dosage: 60 MG, PRN
     Route: 048
     Dates: start: 20170731

REACTIONS (1)
  - Anaphylactic shock [Recovering/Resolving]

NARRATIVE: CASE EVENT DATE: 20170731
